FAERS Safety Report 7535780-X (Version None)
Quarter: 2011Q2

REPORT INFORMATION
  Report Type: 
  Country: None (occurrence: None)
  Receive Date: 20110609
  Receipt Date: 20110321
  Transmission Date: 20111010
  Serious: No
  Sender: FDA-Public Use
  Company Number: US-KINGPHARMUSA00001-K201100311

PATIENT
  Age: 34 Year
  Sex: Female
  Weight: 65.76 kg

DRUGS (5)
  1. EMBEDA [Suspect]
     Dosage: 20 MG, QOD
     Route: 048
     Dates: start: 20110101, end: 20110301
  2. NORCO [Concomitant]
     Indication: ARTHRALGIA
  3. EMBEDA [Suspect]
     Indication: ARTHRALGIA
     Dosage: 20 MG, QD
     Route: 048
     Dates: start: 20101101, end: 20110101
  4. LISINOPRIL [Concomitant]
     Indication: RENAL DISORDER
  5. NORCO [Concomitant]
     Indication: BREAKTHROUGH PAIN

REACTIONS (6)
  - MALAISE [None]
  - DRUG WITHDRAWAL SYNDROME [None]
  - FEELING JITTERY [None]
  - HYPERTENSION [None]
  - DRUG INEFFECTIVE [None]
  - INSOMNIA [None]
